FAERS Safety Report 9725675 (Version 1)
Quarter: 2013Q4

REPORT INFORMATION
  Report Type: Spontaneous
  Country: US (occurrence: US)
  Receive Date: 20131203
  Receipt Date: 20131203
  Transmission Date: 20140711
  Serious: No
  Sender: FDA-Public Use
  Company Number: US-BAYER-2013-147272

PATIENT
  Age: 92 Year
  Sex: Male
  Weight: 85.26 kg

DRUGS (8)
  1. ALEVE CAPLET [Suspect]
     Indication: BACK PAIN
     Dosage: 1 DF, QD
     Route: 048
     Dates: start: 2013
  2. SIMVASTATIN [Concomitant]
  3. TAMSULOSIN [Concomitant]
  4. DILTIAZEM [Concomitant]
  5. BAYER ASPIRIN REGIMEN ADULT LOW STRENGTH [Concomitant]
  6. FISH OIL [Concomitant]
  7. CHONDROITIN W/GLUCOSAMINE [Concomitant]
  8. LEVOTHYROXINE [Concomitant]

REACTIONS (1)
  - Incorrect drug administration duration [None]
